FAERS Safety Report 9380742 (Version 2)
Quarter: 2013Q3

REPORT INFORMATION
  Report Type: Spontaneous
  Country: US (occurrence: US)
  Receive Date: 20130702
  Receipt Date: 20130822
  Transmission Date: 20140515
  Serious: Yes (Hospitalization, Other)
  Sender: FDA-Public Use
  Company Number: US-PFIZER INC-2013195965

PATIENT
  Age: 76 Year
  Sex: Female

DRUGS (20)
  1. NEURONTIN [Suspect]
     Indication: NEUROPATHY PERIPHERAL
     Dosage: 600 MG, 3X/DAY
     Route: 048
  2. NORVASC [Suspect]
     Dosage: UNK
  3. AMLODIPINE BESILATE [Suspect]
     Indication: HYPERTENSION
     Dosage: 5 MG, 1X/DAY
     Route: 048
  4. BYSTOLIC [Concomitant]
     Indication: BLOOD PRESSURE
     Dosage: 10 MG, 1X/DAY
     Route: 048
  5. SYNTHROID [Concomitant]
     Dosage: 25 UG, ONE TABLET ONE DAY
  6. SYNTHROID [Concomitant]
     Dosage: 25 UG, 2 TABLETS FOLLOWING DAY
  7. MIRAPEX [Concomitant]
     Indication: RESTLESS LEGS SYNDROME
     Dosage: 0.5 MG, 1X/DAY
     Route: 048
  8. ALPRAZOLAM [Concomitant]
     Dosage: 0.25 MG, 3X/DAY
     Route: 048
  9. ASPIRIN [Concomitant]
     Dosage: 81 MG, 1X/DAY
     Route: 048
  10. LUTEIN/ZEAXANTHING [Concomitant]
     Dosage: 1 DF, 2X/DAY (ONE TABLET EVERY AM, ONE TABLET EVERY PM)
  11. CALCIUM WITH VITAMIN D [Concomitant]
     Dosage: 2 TABLETS DAILY
  12. MAGNESIUM [Concomitant]
     Dosage: 400MG TOTAL
  13. PLAVIX [Concomitant]
     Dosage: 75 MG, 1X/DAY
     Route: 048
  14. PRAVASTATIN SODIUM [Concomitant]
     Dosage: 40 MG, 1X/DAY
     Route: 048
  15. LASIX [Concomitant]
     Dosage: 40 MG, 1X/DAY
     Route: 048
  16. HYDROCODONE W/ACETAMINOPHEN [Concomitant]
     Indication: PAIN
     Dosage: 5/500 MG, 1 DAILY PRN
     Route: 048
  17. BETAMETHASONE VALERATE [Concomitant]
     Indication: PSORIASIS
     Dosage: 0.1 % CREAM BID PRN
  18. GLIPIZIDE [Concomitant]
     Dosage: 5 MG, 1/2 PO QAM PRN
     Route: 048
  19. POTASSIUM CHLORIDE [Concomitant]
     Dosage: 10 MEQ, 2X/DAY
     Route: 048
  20. CLOPIDOGREL BISULFATE [Concomitant]
     Dosage: 75 MG, 1X/DAY
     Route: 048

REACTIONS (1)
  - Cerebrovascular accident [Recovered/Resolved with Sequelae]
